FAERS Safety Report 9822852 (Version 2)
Quarter: 2014Q1

REPORT INFORMATION
  Report Type: Spontaneous
  Country: US (occurrence: US)
  Receive Date: 20140116
  Receipt Date: 20140116
  Transmission Date: 20141002
  Serious: Yes (Other)
  Sender: FDA-Public Use
  Company Number: ALCN2013US006038

PATIENT
  Sex: Female
  Weight: 83.45 kg

DRUGS (4)
  1. SIMBRINZA [Suspect]
     Indication: INTRAOCULAR PRESSURE INCREASED
     Dosage: 1 GTT, BID
     Route: 047
     Dates: start: 20130806, end: 20131025
  2. SIMBRINZA [Suspect]
     Dosage: 1 GTT, BID
     Route: 047
     Dates: start: 20130806, end: 20131025
  3. TRAVATAN Z [Suspect]
     Dosage: 1 DF
     Route: 047
  4. TRAVATAN Z [Suspect]
     Dosage: UNK UNK
     Route: 047

REACTIONS (2)
  - Depression [Recovered/Resolved]
  - Fatigue [Recovered/Resolved]
